FAERS Safety Report 4268063-4 (Version None)
Quarter: 2004Q1

REPORT INFORMATION
  Report Type: 
  Country: None (occurrence: None)
  Receive Date: 20040109
  Receipt Date: 20040109
  Transmission Date: 20041129
  Serious: Yes (Hospitalization)
  Sender: FDA-Public Use
  Company Number: None

PATIENT
  Sex: Female
  Weight: 67.586 kg

DRUGS (4)
  1. DOCETAXEL 40MG.M2 AVENTIS [Suspect]
     Indication: NON-SMALL CELL LUNG CANCER
     Dosage: 69.2MG DAY 1 AND INTRAVENOUS
     Route: 042
     Dates: start: 20031208, end: 20031215
  2. GEMCITABINE 600MG/M2 LILLY [Suspect]
     Indication: NON-SMALL CELL LUNG CANCER
     Dosage: 1038MG DAY 1 AND 8 INTRAVENOUS
     Route: 042
     Dates: start: 20031208, end: 20031215
  3. NEXIUM [Concomitant]
  4. XANAX [Concomitant]

REACTIONS (2)
  - DEEP VEIN THROMBOSIS [None]
  - PYREXIA [None]
